FAERS Safety Report 24796814 (Version 1)
Quarter: 2025Q1

REPORT INFORMATION
  Report Type: Spontaneous
  Country: CA (occurrence: CA)
  Receive Date: 20250101
  Receipt Date: 20250101
  Transmission Date: 20250409
  Serious: Yes (Death, Other)
  Sender: BRISTOL-MYERS SQUIBB COMPANY
  Company Number: CA-BRISTOL-MYERS SQUIBB COMPANY-2025-000342

PATIENT
  Age: 44 Year
  Sex: Female
  Weight: 97 kg

DRUGS (118)
  1. TRIAMCINOLONE ACETONIDE [Suspect]
     Active Substance: TRIAMCINOLONE ACETONIDE
     Indication: Rheumatoid arthritis
     Route: 014
  2. ACETAMINOPHEN\OXYCODONE HYDROCHLORIDE [Concomitant]
     Active Substance: ACETAMINOPHEN\OXYCODONE HYDROCHLORIDE
     Indication: Product used for unknown indication
  3. ACETAMINOPHEN\OXYCODONE HYDROCHLORIDE [Concomitant]
     Active Substance: ACETAMINOPHEN\OXYCODONE HYDROCHLORIDE
  4. ADALIMUMAB [Concomitant]
     Active Substance: ADALIMUMAB
     Indication: Rheumatoid arthritis
     Route: 058
  5. ADALIMUMAB [Concomitant]
     Active Substance: ADALIMUMAB
  6. ADALIMUMAB [Concomitant]
     Active Substance: ADALIMUMAB
     Route: 058
  7. ALENDRONATE SODIUM\CHOLECALCIFEROL [Concomitant]
     Active Substance: ALENDRONATE SODIUM\CHOLECALCIFEROL
     Indication: Rheumatoid arthritis
     Route: 048
  8. PANTOPRAZOLE SODIUM ANHYDROUS [Concomitant]
     Active Substance: PANTOPRAZOLE SODIUM ANHYDROUS
     Indication: Product used for unknown indication
     Route: 016
  9. ACETAMINOPHEN\CAFFEINE\CODEINE PHOSPHATE [Concomitant]
     Active Substance: ACETAMINOPHEN\CAFFEINE\CODEINE PHOSPHATE
     Indication: Product used for unknown indication
  10. BORAGE OIL [Concomitant]
     Active Substance: BORAGE OIL
     Indication: Product used for unknown indication
  11. CALCIUM CARBONATE\CHOLECALCIFEROL [Concomitant]
     Active Substance: CALCIUM CARBONATE\CHOLECALCIFEROL
     Indication: Product used for unknown indication
  12. CALCIUM GLUBIONATE [Concomitant]
     Active Substance: CALCIUM GLUBIONATE
     Indication: Product used for unknown indication
  13. CHLORHEXIDINE GLUCONATE [Concomitant]
     Active Substance: CHLORHEXIDINE GLUCONATE
     Indication: Product used for unknown indication
  14. COSENTYX [Concomitant]
     Active Substance: SECUKINUMAB
     Indication: Psoriatic arthropathy
     Route: 042
  15. COSENTYX [Concomitant]
     Active Substance: SECUKINUMAB
  16. COSENTYX [Concomitant]
     Active Substance: SECUKINUMAB
     Indication: Product used for unknown indication
  17. DICLOFENAC POTASSIUM [Concomitant]
     Active Substance: DICLOFENAC POTASSIUM
     Indication: Product used for unknown indication
  18. DICLOFENAC POTASSIUM [Concomitant]
     Active Substance: DICLOFENAC POTASSIUM
  19. DICLOFENAC POTASSIUM [Concomitant]
     Active Substance: DICLOFENAC POTASSIUM
     Route: 048
  20. DICLOFENAC POTASSIUM [Concomitant]
     Active Substance: DICLOFENAC POTASSIUM
  21. DICLOFENAC POTASSIUM [Concomitant]
     Active Substance: DICLOFENAC POTASSIUM
  22. DICLOFENAC POTASSIUM [Concomitant]
     Active Substance: DICLOFENAC POTASSIUM
  23. DICLOFENAC POTASSIUM [Concomitant]
     Active Substance: DICLOFENAC POTASSIUM
  24. DICLOFENAC SODIUM [Concomitant]
     Active Substance: DICLOFENAC SODIUM
     Indication: Rheumatoid arthritis
  25. DICLOFENAC SODIUM [Concomitant]
     Active Substance: DICLOFENAC SODIUM
  26. DICLOFENAC SODIUM [Concomitant]
     Active Substance: DICLOFENAC SODIUM
     Route: 048
  27. DICLOFENAC SODIUM [Concomitant]
     Active Substance: DICLOFENAC SODIUM
  28. DICLOFENAC SODIUM [Concomitant]
     Active Substance: DICLOFENAC SODIUM
  29. DICLOFENAC SODIUM [Concomitant]
     Active Substance: DICLOFENAC SODIUM
  30. DICLOFENAC SODIUM [Concomitant]
     Active Substance: DICLOFENAC SODIUM
  31. DICLOFENAC SODIUM [Concomitant]
     Active Substance: DICLOFENAC SODIUM
  32. DICLOFENAC SODIUM [Concomitant]
     Active Substance: DICLOFENAC SODIUM
  33. DICLOFENAC SODIUM [Concomitant]
     Active Substance: DICLOFENAC SODIUM
  34. DICLOFENAC SODIUM [Concomitant]
     Active Substance: DICLOFENAC SODIUM
     Route: 031
  35. DILTIAZEM [Concomitant]
     Active Substance: DILTIAZEM
     Indication: Product used for unknown indication
  36. DOXYCYCLINE HYCLATE [Concomitant]
     Active Substance: DOXYCYCLINE HYCLATE
     Indication: Product used for unknown indication
  37. DOXYCYCLINE HYCLATE [Concomitant]
     Active Substance: DOXYCYCLINE HYCLATE
  38. DOXYCYCLINE HYCLATE [Concomitant]
     Active Substance: DOXYCYCLINE HYCLATE
  39. EMEND [Concomitant]
     Active Substance: APREPITANT
     Indication: Product used for unknown indication
     Route: 042
  40. ENTYVIO [Concomitant]
     Active Substance: VEDOLIZUMAB
     Indication: Product used for unknown indication
     Route: 042
  41. ERELZI [Concomitant]
     Active Substance: ETANERCEPT-SZZS
     Indication: Rheumatoid arthritis
     Route: 058
  42. ERELZI [Concomitant]
     Active Substance: ETANERCEPT-SZZS
  43. ERELZI [Concomitant]
     Active Substance: ETANERCEPT-SZZS
     Route: 058
  44. ERELZI [Concomitant]
     Active Substance: ETANERCEPT-SZZS
  45. ERELZI [Concomitant]
     Active Substance: ETANERCEPT-SZZS
     Route: 058
  46. FLUMETHASONE PIVALATE [Concomitant]
     Active Substance: FLUMETHASONE PIVALATE
     Indication: Rheumatoid arthritis
  47. GRAMICIDIN;NEOMYCIN;NYSTATIN;TRIAMCINOLONE ACETONIDE [Concomitant]
     Indication: Product used for unknown indication
  48. HYDROCORTISONE [Concomitant]
     Active Substance: HYDROCORTISONE
     Indication: Rheumatoid arthritis
  49. HYDROCORTISONE SODIUM SUCCINATE [Concomitant]
     Active Substance: HYDROCORTISONE SODIUM SUCCINATE
     Indication: Rheumatoid arthritis
     Route: 058
  50. HYDROCORTISONE SODIUM SUCCINATE [Concomitant]
     Active Substance: HYDROCORTISONE SODIUM SUCCINATE
  51. HYDROCORTISONE SODIUM SUCCINATE [Concomitant]
     Active Substance: HYDROCORTISONE SODIUM SUCCINATE
  52. HYDROXYCHLOROQUINE [Concomitant]
     Active Substance: HYDROXYCHLOROQUINE
     Indication: Rheumatoid arthritis
  53. HYDROXYCHLOROQUINE [Concomitant]
     Active Substance: HYDROXYCHLOROQUINE
     Route: 048
  54. HYDROXYCHLOROQUINE [Concomitant]
     Active Substance: HYDROXYCHLOROQUINE
     Route: 048
  55. ISOPROPYL ALCOHOL [Concomitant]
     Active Substance: ISOPROPYL ALCOHOL
     Indication: Product used for unknown indication
     Route: 061
  56. ISOPROPYL ALCOHOL [Concomitant]
     Active Substance: ISOPROPYL ALCOHOL
  57. ISOPROPYL ALCOHOL [Concomitant]
     Active Substance: ISOPROPYL ALCOHOL
     Route: 048
  58. KEVZARA [Concomitant]
     Active Substance: SARILUMAB
     Indication: Rheumatoid arthritis
  59. LISINOPRIL [Concomitant]
     Active Substance: LISINOPRIL
     Indication: Product used for unknown indication
  60. MARVELON [Concomitant]
     Active Substance: DESOGESTREL\ETHINYL ESTRADIOL
     Indication: Product used for unknown indication
  61. METHOTREXATE [Concomitant]
     Active Substance: METHOTREXATE
     Indication: Rheumatoid arthritis
     Route: 048
  62. METHOTREXATE [Concomitant]
     Active Substance: METHOTREXATE
     Route: 013
  63. METHOTREXATE [Concomitant]
     Active Substance: METHOTREXATE
     Route: 048
  64. METHOTREXATE [Concomitant]
     Active Substance: METHOTREXATE
  65. METHOTREXATE [Concomitant]
     Active Substance: METHOTREXATE
     Route: 058
  66. METHOTREXATE [Concomitant]
     Active Substance: METHOTREXATE
     Route: 048
  67. METHOTREXATE [Concomitant]
     Active Substance: METHOTREXATE
     Route: 048
  68. METHOTREXATE [Concomitant]
     Active Substance: METHOTREXATE
     Route: 048
  69. METHOTREXATE [Concomitant]
     Active Substance: METHOTREXATE
     Route: 048
  70. METHOTREXATE [Concomitant]
     Active Substance: METHOTREXATE
     Route: 048
  71. METHOTREXATE [Concomitant]
     Active Substance: METHOTREXATE
     Route: 013
  72. METHOTREXATE [Concomitant]
     Active Substance: METHOTREXATE
     Route: 013
  73. METHOTREXATE [Concomitant]
     Active Substance: METHOTREXATE
     Route: 013
  74. METHOTREXATE [Concomitant]
     Active Substance: METHOTREXATE
     Route: 013
  75. METHOTREXATE [Concomitant]
     Active Substance: METHOTREXATE
     Route: 013
  76. METHOTREXATE [Concomitant]
     Active Substance: METHOTREXATE
     Route: 058
  77. METHOTREXATE [Concomitant]
     Active Substance: METHOTREXATE
     Route: 013
  78. METHOTREXATE [Concomitant]
     Active Substance: METHOTREXATE
  79. METHOTREXATE [Concomitant]
     Active Substance: METHOTREXATE
     Route: 013
  80. METHOTREXATE [Concomitant]
     Active Substance: METHOTREXATE
     Route: 013
  81. METHOTREXATE [Concomitant]
     Active Substance: METHOTREXATE
     Route: 013
  82. METHYLPREDNISOLONE SODIUM SUCCINATE [Concomitant]
     Active Substance: METHYLPREDNISOLONE SODIUM SUCCINATE
     Indication: Product used for unknown indication
  83. MESALAMINE [Concomitant]
     Active Substance: MESALAMINE
     Indication: Product used for unknown indication
  84. MOXIFLOXACIN [Concomitant]
     Active Substance: MOXIFLOXACIN
     Indication: Product used for unknown indication
     Route: 058
  85. NAPROXEN [Concomitant]
     Active Substance: NAPROXEN
     Indication: Product used for unknown indication
  86. NEOMYCIN [Concomitant]
     Active Substance: NEOMYCIN
     Indication: Product used for unknown indication
  87. OXYCODONE [Concomitant]
     Active Substance: OXYCODONE
     Indication: Product used for unknown indication
  88. OXYCODONE [Concomitant]
     Active Substance: OXYCODONE
     Route: 042
  89. OXYCODONE [Concomitant]
     Active Substance: OXYCODONE
  90. OXYCODONE HYDROCHLORIDE [Concomitant]
     Active Substance: OXYCODONE HYDROCHLORIDE
     Indication: Product used for unknown indication
  91. OXYCODONE TEREPHTHALATE [Concomitant]
     Active Substance: OXYCODONE TEREPHTHALATE
     Indication: Product used for unknown indication
  92. PANTOPRAZOLE SODIUM [Concomitant]
     Active Substance: PANTOPRAZOLE SODIUM
     Indication: Product used for unknown indication
     Route: 016
  93. PANTOPRAZOLE SODIUM [Concomitant]
     Active Substance: PANTOPRAZOLE SODIUM
  94. PHENYLEPHRINE HYDROCHLORIDE [Concomitant]
     Active Substance: PHENYLEPHRINE HYDROCHLORIDE
     Indication: Rheumatoid arthritis
     Route: 030
  95. PSEUDOEPHEDRINE [Concomitant]
     Active Substance: PSEUDOEPHEDRINE
     Indication: Sinusitis
  96. PSEUDOEPHEDRINE HYDROCHLORIDE\TRIPROLIDINE HYDROCHLORIDE [Concomitant]
     Active Substance: PSEUDOEPHEDRINE HYDROCHLORIDE\TRIPROLIDINE HYDROCHLORIDE
     Indication: Product used for unknown indication
  97. RAMIPRIL [Concomitant]
     Active Substance: RAMIPRIL
     Indication: Product used for unknown indication
  98. RITUXIMAB [Concomitant]
     Active Substance: RITUXIMAB
     Indication: Rheumatoid arthritis
     Route: 042
  99. RITUXIMAB [Concomitant]
     Active Substance: RITUXIMAB
     Route: 042
  100. RITUXIMAB [Concomitant]
     Active Substance: RITUXIMAB
     Route: 042
  101. RITUXIMAB [Concomitant]
     Active Substance: RITUXIMAB
  102. RITUXIMAB [Concomitant]
     Active Substance: RITUXIMAB
     Route: 048
  103. RITUXIMAB [Concomitant]
     Active Substance: RITUXIMAB
     Route: 042
  104. RITUXIMAB [Concomitant]
     Active Substance: RITUXIMAB
     Route: 042
  105. ALBUTEROL [Concomitant]
     Active Substance: ALBUTEROL
     Indication: Product used for unknown indication
  106. SOLU-MEDROL [Concomitant]
     Active Substance: METHYLPREDNISOLONE SODIUM SUCCINATE
     Indication: Product used for unknown indication
  107. SULFAMETHOXAZOLE [Concomitant]
     Active Substance: SULFAMETHOXAZOLE
     Indication: Product used for unknown indication
  108. SULFAMETHOXAZOLE\TRIMETHOPRIM [Concomitant]
     Active Substance: SULFAMETHOXAZOLE\TRIMETHOPRIM
  109. SULFAMETHOXAZOLE\TRIMETHOPRIM [Concomitant]
     Active Substance: SULFAMETHOXAZOLE\TRIMETHOPRIM
  110. SULFATHIAZOLE [Concomitant]
     Active Substance: SULFATHIAZOLE
     Indication: Rheumatoid arthritis
  111. TRAMADOL HYDROCHLORIDE [Concomitant]
     Active Substance: TRAMADOL HYDROCHLORIDE
     Indication: Product used for unknown indication
  112. TUMS [Concomitant]
     Active Substance: CALCIUM CARBONATE
     Indication: Product used for unknown indication
  113. TYLENOL [Concomitant]
     Active Substance: ACETAMINOPHEN
     Indication: Product used for unknown indication
  114. TYLENOL WITH CODEINE [Concomitant]
     Active Substance: ACETAMINOPHEN\CODEINE PHOSPHATE
     Indication: Product used for unknown indication
  115. CYANOCOBALAMIN [Concomitant]
     Active Substance: CYANOCOBALAMIN
     Indication: Product used for unknown indication
  116. HYALURONIDASE (HUMAN RECOMBINANT) [Concomitant]
     Active Substance: HYALURONIDASE (HUMAN RECOMBINANT)
     Indication: Rheumatoid arthritis
  117. XELJANZ [Concomitant]
     Active Substance: TOFACITINIB CITRATE
  118. ZOPICLONE [Concomitant]
     Active Substance: ZOPICLONE
     Indication: Product used for unknown indication

REACTIONS (1)
  - Death [Fatal]
